FAERS Safety Report 9758446 (Version 1)
Quarter: 2013Q4

REPORT INFORMATION
  Report Type: Spontaneous
  Country: GB (occurrence: GB)
  Receive Date: 20131216
  Receipt Date: 20131216
  Transmission Date: 20140711
  Serious: Yes (Hospitalization)
  Sender: FDA-Public Use
  Company Number: GB-009507513-1312GBR005465

PATIENT
  Age: 36 Year
  Sex: Female

DRUGS (2)
  1. NEXPLANON [Suspect]
     Dosage: 68 MG, UNK
     Route: 059
     Dates: start: 2011
  2. PREGABALIN [Suspect]
     Dosage: UNK

REACTIONS (1)
  - Liver function test abnormal [Unknown]
